FAERS Safety Report 12556899 (Version 3)
Quarter: 2016Q3

REPORT INFORMATION
  Report Type: Spontaneous
  Country: US (occurrence: US)
  Receive Date: 20160714
  Receipt Date: 20160810
  Transmission Date: 20161109
  Serious: Yes (Other)
  Sender: FDA-Public Use
  Company Number: US-BAYER-2016-136382

PATIENT
  Age: 21 Year
  Sex: Female

DRUGS (1)
  1. SKYLA [Suspect]
     Active Substance: LEVONORGESTREL
     Dosage: 14 MCG/24HR, CONT
     Route: 015
     Dates: start: 20160622, end: 20160622

REACTIONS (6)
  - Abdominal pain lower [None]
  - Device dislocation [None]
  - Device physical property issue [None]
  - Device expulsion [None]
  - Device breakage [None]
  - Device expulsion [None]

NARRATIVE: CASE EVENT DATE: 201606
